FAERS Safety Report 5707441-0 (Version None)
Quarter: 2008Q2

REPORT INFORMATION
  Report Type: 
  Country: None (occurrence: None)
  Receive Date: 20080416
  Receipt Date: 20080409
  Transmission Date: 20081010
  Serious: Yes (Hospitalization, Other)
  Sender: FDA-Public Use
  Company Number: FR-WYE-G01011208

PATIENT
  Sex: Male
  Weight: 65 kg

DRUGS (9)
  1. TORISEL [Suspect]
     Indication: RENAL CANCER METASTATIC
     Route: 042
     Dates: start: 20080104, end: 20080121
  2. TORISEL [Suspect]
     Indication: RENAL CELL CARCINOMA RECURRENT
  3. FLUDEX [Concomitant]
     Indication: HYPERTENSION
     Dosage: UNKNOWN
     Route: 048
  4. FENOFIBRATE [Concomitant]
     Indication: HYPERTRIGLYCERIDAEMIA
     Route: 048
     Dates: start: 20080110
  5. CORDARONE [Suspect]
     Indication: ATRIAL FIBRILLATION
     Route: 048
     Dates: start: 20071101, end: 20080205
  6. DETENSIEL [Concomitant]
     Indication: HYPERTENSION
     Dosage: UNKNOWN
     Route: 048
  7. PLAVIX [Concomitant]
     Dosage: UNKNOWN
     Route: 048
     Dates: start: 20071101
  8. LOXEN [Concomitant]
     Indication: HYPERTENSION
     Dosage: 100 MG TOTAL DAILY
     Route: 048
  9. SKENAN [Concomitant]
     Indication: PAIN
     Dosage: 60 MG TOTAL DAILY
     Route: 048
     Dates: start: 20071101

REACTIONS (10)
  - ANAEMIA [None]
  - ASTHENIA [None]
  - CYTOLYTIC HEPATITIS [None]
  - FEEDING DISORDER [None]
  - GENERAL PHYSICAL HEALTH DETERIORATION [None]
  - HYPONATRAEMIA [None]
  - INFECTION [None]
  - INTERSTITIAL LUNG DISEASE [None]
  - PAIN [None]
  - RENAL FAILURE [None]
